FAERS Safety Report 8466113-2 (Version None)
Quarter: 2012Q2

REPORT INFORMATION
  Report Type: 
  Country: None (occurrence: None)
  Receive Date: 20120620
  Receipt Date: 20120620
  Transmission Date: 20120825
  Serious: Yes (Hospitalization, Other)
  Sender: FDA-Public Use
  Company Number: None

PATIENT
  Sex: Female

DRUGS (3)
  1. OXYCONTIN [Suspect]
     Indication: MIGRAINE
     Dosage: 10 MG ONCE PO
     Route: 048
     Dates: start: 20120615, end: 20120615
  2. OXYCONTIN [Suspect]
     Indication: NEUROPATHY PERIPHERAL
     Dosage: 10 MG ONCE PO
     Route: 048
     Dates: start: 20120615, end: 20120615
  3. DELOTID [Concomitant]

REACTIONS (9)
  - FLUSHING [None]
  - DYSARTHRIA [None]
  - MIOSIS [None]
  - ABASIA [None]
  - NAUSEA [None]
  - FEELING DRUNK [None]
  - HEADACHE [None]
  - CONFUSIONAL STATE [None]
  - TARDIVE DYSKINESIA [None]
